FAERS Safety Report 12983429 (Version 1)
Quarter: 2016Q4

REPORT INFORMATION
  Report Type: Spontaneous
  Country: US (occurrence: US)
  Receive Date: 20161129
  Receipt Date: 20161129
  Transmission Date: 20170207
  Serious: Yes (Death, Other)
  Sender: FDA-Public Use
  Company Number: US-BRISTOL-MYERS SQUIBB COMPANY-BMS-2016-100440

PATIENT
  Sex: Male

DRUGS (2)
  1. SPRYCEL [Suspect]
     Active Substance: DASATINIB
     Indication: PLASMA CELL MYELOMA
     Dosage: 140 MG, UNK
     Route: 065
     Dates: start: 20161028
  2. SPRYCEL [Suspect]
     Active Substance: DASATINIB
     Indication: MYELOID LEUKAEMIA
     Route: 065

REACTIONS (2)
  - Death [Fatal]
  - Product use issue [Unknown]
